FAERS Safety Report 16492922 (Version 2)
Quarter: 2019Q3

REPORT INFORMATION
  Report Type: Spontaneous
  Country: LB (occurrence: LB)
  Receive Date: 20190628
  Receipt Date: 20190704
  Transmission Date: 20191004
  Serious: Yes (Hospitalization, Other)
  Sender: FDA-Public Use
  Company Number: LB-BRISTOL-MYERS SQUIBB COMPANY-BMS-2019-019190

PATIENT
  Age: 83 Year
  Sex: Male

DRUGS (2)
  1. OPDIVO [Suspect]
     Active Substance: NIVOLUMAB
     Indication: MALIGNANT MELANOMA
     Dosage: 240 MILLIGRAM, Q2WK
     Route: 065
  2. YERVOY [Suspect]
     Active Substance: IPILIMUMAB
     Indication: MALIGNANT MELANOMA
     Dosage: 60 MILLIGRAM, Q2WK
     Route: 065

REACTIONS (6)
  - Drug ineffective [Unknown]
  - Abdominal pain [Unknown]
  - Pyrexia [Unknown]
  - Hepatomegaly [Unknown]
  - Intercepted product prescribing error [Unknown]
  - Intentional product use issue [Unknown]
